FAERS Safety Report 5191795-0 (Version None)
Quarter: 2006Q4

REPORT INFORMATION
  Report Type: 
  Country: None (occurrence: None)
  Receive Date: 20061227
  Receipt Date: 20061218
  Transmission Date: 20070319
  Serious: Yes (Hospitalization, Other)
  Sender: FDA-Public Use
  Company Number: GB-JNJFOC-20061204882

PATIENT
  Sex: Female
  Weight: 86 kg

DRUGS (11)
  1. REMICADE [Suspect]
     Indication: RHEUMATOID ARTHRITIS
     Route: 042
  2. DOXYCYCLINE [Suspect]
     Indication: DRUG USE FOR UNKNOWN INDICATION
     Route: 065
  3. METHOTREXATE [Concomitant]
     Route: 065
  4. PREDNISOLONE [Concomitant]
     Route: 065
  5. BECLOMETHASONE DIPROPIONATE [Concomitant]
     Route: 065
  6. CALCICHEW [Concomitant]
     Route: 065
  7. FOLIC ACID [Concomitant]
     Route: 065
  8. ACETAMINOPHEN [Concomitant]
     Route: 065
  9. TRAXAM [Concomitant]
     Route: 065
  10. VENTOLIN [Concomitant]
     Route: 065
  11. LANSOPRAZOLE [Concomitant]
     Route: 065

REACTIONS (1)
  - DRUG HYPERSENSITIVITY [None]
